FAERS Safety Report 5632778-3 (Version None)
Quarter: 2008Q1

REPORT INFORMATION
  Report Type: 
  Country: None (occurrence: None)
  Receive Date: 20080221
  Receipt Date: 20080211
  Transmission Date: 20080703
  Serious: Yes (Other)
  Sender: FDA-Public Use
  Company Number: GB-BRACCO-000010

PATIENT
  Sex: Female

DRUGS (2)
  1. NIOPAM [Suspect]
     Indication: CATHETERISATION CARDIAC
     Route: 042
  2. NIOPAM [Suspect]
     Indication: PERCUTANEOUS CORONARY INTERVENTION
     Route: 042

REACTIONS (4)
  - COMPUTERISED TOMOGRAM ABNORMAL [None]
  - DYSPHASIA [None]
  - HEMIPARESIS [None]
  - SUBARACHNOID HAEMORRHAGE [None]
